FAERS Safety Report 24186757 (Version 2)
Quarter: 2024Q3

REPORT INFORMATION
  Report Type: Report from Study
  Country: CN (occurrence: CN)
  Receive Date: 20240808
  Receipt Date: 20240813
  Transmission Date: 20241016
  Serious: Yes (Hospitalization)
  Sender: ROCHE
  Company Number: CN-ROCHE-10000047509

PATIENT
  Age: 55 Year
  Sex: Male

DRUGS (2)
  1. ATEZOLIZUMAB [Suspect]
     Active Substance: ATEZOLIZUMAB
     Indication: Hepatocellular carcinoma
     Dosage: STRENGTH: 1200MG/20ML
     Route: 042
     Dates: start: 20240723
  2. BEVACIZUMAB [Suspect]
     Active Substance: BEVACIZUMAB
     Indication: Hepatocellular carcinoma
     Dosage: STRENGTH: 100 MG/VIAL
     Route: 042
     Dates: start: 20240723

REACTIONS (1)
  - Intestinal varices [Not Recovered/Not Resolved]

NARRATIVE: CASE EVENT DATE: 20240729
